FAERS Safety Report 10415900 (Version 2)
Quarter: 2015Q1

REPORT INFORMATION
  Report Type: Report from Study
  Country: US (occurrence: US)
  Receive Date: 20140828
  Receipt Date: 20150121
  Transmission Date: 20150720
  Serious: Yes (Hospitalization, Other)
  Sender: FDA-Public Use
  Company Number: US-ASTELLAS-2014US011146

PATIENT
  Age: 79 Year
  Sex: Female

DRUGS (5)
  1. ERLOTINIB [Suspect]
     Active Substance: ERLOTINIB
     Route: 048
  2. METFORMIN [Concomitant]
     Active Substance: METFORMIN HYDROCHLORIDE
     Indication: DIABETES MELLITUS
     Route: 048
  3. ERLOTINIB [Suspect]
     Active Substance: ERLOTINIB
     Indication: LUNG NEOPLASM MALIGNANT
     Route: 048
     Dates: start: 201103
  4. LEVOTHYROXINE [Concomitant]
     Active Substance: LEVOTHYROXINE
     Indication: BLOOD THYROID STIMULATING HORMONE
     Dosage: 0.1 MG, ONCE DAILY
     Route: 048
  5. PRAVASTATIN [Concomitant]
     Active Substance: PRAVASTATIN\PRAVASTATIN SODIUM
     Indication: BLOOD CHOLESTEROL INCREASED
     Dosage: UNK UNK, UNKNOWN FREQ.
     Route: 065

REACTIONS (19)
  - Blood urine present [Unknown]
  - Back pain [Unknown]
  - Contusion [Unknown]
  - Hypoacusis [Unknown]
  - Fatigue [Unknown]
  - Headache [Unknown]
  - Retching [Unknown]
  - Polyp [Unknown]
  - Renal impairment [Unknown]
  - Nausea [Unknown]
  - Weight decreased [Unknown]
  - Hip fracture [Recovering/Resolving]
  - Rash [Recovered/Resolved]
  - Hip arthroplasty [Unknown]
  - Mental impairment [Unknown]
  - Abdominal pain [Unknown]
  - Flatulence [Unknown]
  - Fall [Unknown]
  - Visual acuity reduced [Unknown]

NARRATIVE: CASE EVENT DATE: 20140808
